FAERS Safety Report 4800088-X (Version None)
Quarter: 2005Q4

REPORT INFORMATION
  Report Type: 
  Country: None (occurrence: None)
  Receive Date: 20051012
  Receipt Date: 20051012
  Transmission Date: 20060501
  Serious: Yes (Hospitalization)
  Sender: FDA-Public Use
  Company Number: None

PATIENT
  Sex: Female
  Weight: 81.6475 kg

DRUGS (8)
  1. ALIMTA [Suspect]
     Indication: NEOPLASM MALIGNANT
     Dosage: [PRIOR TO ADMISSION]
  2. IODOPHOR [Suspect]
  3. SYNTHROID [Concomitant]
  4. METOPROLOL [Concomitant]
  5. DYAZIDE [Concomitant]
  6. ACIPHEX [Concomitant]
  7. EFFEXOR [Concomitant]
  8. OXYCONTIN [Concomitant]

REACTIONS (2)
  - PANCREATITIS [None]
  - PANCYTOPENIA [None]
